FAERS Safety Report 4626620-7 (Version None)
Quarter: 2005Q1

REPORT INFORMATION
  Report Type: 
  Country: None (occurrence: None)
  Receive Date: 20050330
  Receipt Date: 20050316
  Transmission Date: 20050727
  Serious: Yes (Hospitalization)
  Sender: FDA-Public Use
  Company Number: 200414329BCC

PATIENT
  Age: 0 Day
  Sex: Female

DRUGS (1)
  1. RID MOUSSE [Suspect]
     Indication: LICE INFESTATION
     Dosage: TRANSPLACENTAL
     Route: 064

REACTIONS (6)
  - BLOOD BILIRUBIN INCREASED [None]
  - COMPLICATIONS OF MATERNAL EXPOSURE TO THERAPEUTIC DRUGS [None]
  - HAEMOGLOBIN INCREASED [None]
  - JAUNDICE NEONATAL [None]
  - PREMATURE BABY [None]
  - RETICULOCYTE COUNT INCREASED [None]
